FAERS Safety Report 6892503-5 (Version None)
Quarter: 2010Q3

REPORT INFORMATION
  Report Type: 
  Country: None (occurrence: None)
  Receive Date: 20100731
  Receipt Date: 20080613
  Transmission Date: 20110219
  Serious: No
  Sender: FDA-Public Use
  Company Number: US-PFIZER INC-2008050480

PATIENT
  Age: 53 Year
  Sex: Female

DRUGS (4)
  1. NEURONTIN [Suspect]
     Indication: FIBROMYALGIA
  2. NEURONTIN [Suspect]
     Indication: PAIN
  3. LYRICA [Suspect]
     Indication: FIBROMYALGIA
  4. LYRICA [Suspect]
     Indication: PAIN

REACTIONS (4)
  - ANGER [None]
  - FATIGUE [None]
  - POST-TRAUMATIC STRESS DISORDER [None]
  - SLEEP DISORDER [None]
